FAERS Safety Report 18362190 (Version 1)
Quarter: 2020Q4

REPORT INFORMATION
  Report Type: Spontaneous
  Country: GB (occurrence: GB)
  Receive Date: 20201008
  Receipt Date: 20201008
  Transmission Date: 20210114
  Serious: Yes (Disabling)
  Sender: FDA-Public Use
  Company Number: GB-MYLANLABS-2020M1084732

PATIENT
  Age: 43 Year
  Sex: Male
  Weight: 92.98 kg

DRUGS (1)
  1. DOXYCYCLINE. [Suspect]
     Active Substance: DOXYCYCLINE
     Indication: EPIDIDYMITIS
     Dosage: 100 MILLIGRAM
     Route: 048
     Dates: start: 20200825, end: 20200903

REACTIONS (3)
  - Colitis ulcerative [Not Recovered/Not Resolved]
  - Pancreatitis [Not Recovered/Not Resolved]
  - Pain [Not Recovered/Not Resolved]

NARRATIVE: CASE EVENT DATE: 20200902
